FAERS Safety Report 8793635 (Version 1)
Quarter: 2012Q4

REPORT INFORMATION
  Report Type: 
  Country: IT (occurrence: IT)
  Receive Date: 20120917
  Receipt Date: 20120917
  Transmission Date: 20130627
  Serious: Yes (Hospitalization)
  Sender: FDA-Public Use
  Company Number: IT-GLAXOSMITHKLINE-B0830807A

PATIENT
  Age: 50 Year
  Sex: Female

DRUGS (2)
  1. ZINNAT [Suspect]
     Indication: PYREXIA
     Route: 048
     Dates: start: 20120329, end: 20120329
  2. DOXOFYLLINE [Suspect]
     Indication: DYSPNOEA
     Route: 048
     Dates: start: 20120329, end: 20120329

REACTIONS (3)
  - Asthenia [Recovered/Resolved]
  - Dyspnoea [Recovered/Resolved]
  - Rash generalised [Recovered/Resolved]
